FAERS Safety Report 19315866 (Version 1)
Quarter: 2021Q2

REPORT INFORMATION
  Report Type: Spontaneous
  Country: US (occurrence: US)
  Receive Date: 20210527
  Receipt Date: 20210527
  Transmission Date: 20210717
  Serious: Yes (Other)
  Sender: FDA-Public Use
  Company Number: US-AMGEN-USASP2021080503

PATIENT
  Age: 67 Year
  Sex: Female

DRUGS (3)
  1. LODINE [Concomitant]
     Active Substance: ETODOLAC
  2. OTEZLA [Suspect]
     Active Substance: APREMILAST
     Indication: PSORIATIC ARTHROPATHY
     Dosage: 30 MILLIGRAM, BID
     Route: 048
     Dates: start: 20200124
  3. INDOCIN [Concomitant]
     Active Substance: INDOMETHACIN

REACTIONS (2)
  - Therapeutic product effect incomplete [Unknown]
  - Diverticulitis [Recovered/Resolved]

NARRATIVE: CASE EVENT DATE: 20210522
